FAERS Safety Report 7468530-6 (Version None)
Quarter: 2011Q2

REPORT INFORMATION
  Report Type: 
  Country: None (occurrence: None)
  Receive Date: 20110509
  Receipt Date: 20110427
  Transmission Date: 20111010
  Serious: Yes (Hospitalization)
  Sender: FDA-Public Use
  Company Number: FR-KINGPHARMUSA00001-K201100505

PATIENT
  Age: 81 Year
  Sex: Female

DRUGS (9)
  1. PREDNISOLONE [Suspect]
     Indication: ASTHMA
     Dosage: UNK
  2. ALTACE [Suspect]
     Dosage: UNK
     Route: 048
  3. PREVISCAN [Suspect]
     Dosage: UNK
  4. LASIX [Suspect]
     Dosage: UNK
  5. PULMICORT [Suspect]
     Dosage: UNK
  6. VENTOLIN [Suspect]
     Dosage: UNK
  7. DILTIAZEM HCL [Suspect]
     Dosage: UNK
  8. PRAVASTATIN SODIUM [Suspect]
     Indication: HYPERCHOLESTEROLAEMIA
     Dosage: UNK
  9. BUDESONIDE [Suspect]
     Dosage: UNK

REACTIONS (8)
  - ABDOMINAL PAIN [None]
  - CONSTIPATION [None]
  - VOMITING [None]
  - BLOOD AMYLASE INCREASED [None]
  - OEDEMATOUS PANCREATITIS [None]
  - DYSPNOEA [None]
  - LIPASE INCREASED [None]
  - ACUTE RESPIRATORY FAILURE [None]
